FAERS Safety Report 16479268 (Version 1)
Quarter: 2019Q2

REPORT INFORMATION
  Report Type: Spontaneous
  Country: US (occurrence: US)
  Receive Date: 20190626
  Receipt Date: 20190626
  Transmission Date: 20190711
  Serious: No
  Sender: FDA-Public Use
  Company Number: US-SAOL THERAPEUTICS-2019SAO00216

PATIENT
  Age: 59 Year
  Sex: Female

DRUGS (4)
  1. LIORESAL [Suspect]
     Active Substance: BACLOFEN
     Indication: SPINAL CORD INJURY
     Dosage: 30 ?G, \DAY
     Route: 037
  2. LIORESAL [Suspect]
     Active Substance: BACLOFEN
     Indication: MUSCLE SPASTICITY
  3. LIORESAL [Suspect]
     Active Substance: BACLOFEN
     Indication: SPINAL CORD INJURY
  4. LIORESAL [Suspect]
     Active Substance: BACLOFEN
     Indication: MUSCLE SPASTICITY
     Dosage: 224.9 ?G, \DAY
     Route: 037

REACTIONS (3)
  - Malaise [Unknown]
  - Pruritus [Unknown]
  - Muscle spasticity [Unknown]

NARRATIVE: CASE EVENT DATE: 201903
